FAERS Safety Report 6293082-6 (Version None)
Quarter: 2009Q3

REPORT INFORMATION
  Report Type: 
  Country: None (occurrence: None)
  Receive Date: 20090731
  Receipt Date: 20090729
  Transmission Date: 20100115
  Serious: Yes (Hospitalization)
  Sender: FDA-Public Use
  Company Number: US-BRISTOL-MYERS SQUIBB COMPANY-14720304

PATIENT
  Age: 74 Year
  Sex: Female
  Weight: 47 kg

DRUGS (2)
  1. ORENCIA [Suspect]
     Indication: RHEUMATOID ARTHRITIS
     Dates: end: 20090706
  2. ENBREL [Concomitant]

REACTIONS (7)
  - ABDOMINAL PAIN UPPER [None]
  - DYSPNOEA [None]
  - FATIGUE [None]
  - NAUSEA [None]
  - OROPHARYNGEAL PAIN [None]
  - PNEUMONIA [None]
  - WHEEZING [None]
